FAERS Safety Report 5271053-6 (Version None)
Quarter: 2007Q1

REPORT INFORMATION
  Report Type: 
  Country: None (occurrence: None)
  Receive Date: 20070315
  Receipt Date: 20070228
  Transmission Date: 20070707
  Serious: Yes (Hospitalization)
  Sender: FDA-Public Use
  Company Number: 2007RR-06117

PATIENT
  Sex: Male

DRUGS (4)
  1. LAMIVUDINE(LAMIVUDINE) UNKNOWN [Suspect]
     Dosage: INTRA-UTERINE
     Route: 015
  2. STAVUDINE(STAVUDINE) UNKNOWN [Suspect]
     Dosage: INTRA-UTERINE
     Route: 015
  3. NEVIRAPINE(NEVIRAPINE) UNKNOWN [Suspect]
     Dosage: INTRA-UTERINE
     Route: 015
  4. ZIDOVUDINE [Suspect]
     Dosage: INTRAVENOUS
     Route: 042

REACTIONS (13)
  - ABDOMINAL DISTENSION [None]
  - BREATH ODOUR [None]
  - DEHYDRATION [None]
  - DEVELOPMENTAL DELAY [None]
  - DIARRHOEA [None]
  - DIARRHOEA NEONATAL [None]
  - DRUG EXPOSURE DURING PREGNANCY [None]
  - DYSKINESIA [None]
  - FEEDING DISORDER OF INFANCY OR EARLY CHILDHOOD [None]
  - HYPERLACTACIDAEMIA [None]
  - NEONATAL DISORDER [None]
  - PYREXIA [None]
  - VOMITING NEONATAL [None]
